FAERS Safety Report 5531432-6 (Version None)
Quarter: 2007Q4

REPORT INFORMATION
  Report Type: 
  Country: None (occurrence: None)
  Receive Date: 20071203
  Receipt Date: 20071121
  Transmission Date: 20080405
  Serious: Yes (Hospitalization, Other)
  Sender: FDA-Public Use
  Company Number: US-JNJFOC-20071108911

PATIENT
  Sex: Female
  Weight: 190.51 kg

DRUGS (15)
  1. RISPERDAL [Suspect]
     Indication: COGNITIVE DISORDER
     Route: 048
  2. RISPERDAL [Suspect]
     Indication: FATIGUE
     Route: 048
  3. RISPERDAL [Suspect]
     Indication: DEPRESSION
     Route: 048
  4. PROVIGIL [Suspect]
     Indication: FATIGUE
     Route: 048
  5. PROVIGIL [Suspect]
     Indication: COGNITIVE DISORDER
     Route: 048
  6. ZYPREXA [Suspect]
     Indication: DRUG USE FOR UNKNOWN INDICATION
     Route: 065
  7. EFFEXOR XR [Concomitant]
  8. LITHIUM [Concomitant]
  9. PRILOSEC [Concomitant]
  10. ENABLEX [Concomitant]
  11. LIPITOR [Concomitant]
  12. TRIAMTERENE [Concomitant]
  13. MIRAPEX [Concomitant]
     Indication: RESTLESS LEGS SYNDROME
  14. POTASSIUM CHLORIDE [Concomitant]
  15. COUMADIN [Concomitant]

REACTIONS (9)
  - ANAEMIA [None]
  - DYSPHAGIA [None]
  - IMPAIRED GASTRIC EMPTYING [None]
  - MIGRAINE WITH AURA [None]
  - ORAL DISORDER [None]
  - RESPIRATORY RATE INCREASED [None]
  - STOMATITIS [None]
  - TARDIVE DYSKINESIA [None]
  - TREMOR [None]
